FAERS Safety Report 7834526 (Version 3)
Quarter: 2012Q4

REPORT INFORMATION
  Report Type: 
  Country: US (occurrence: US)
  Receive Date: 20110301
  Receipt Date: 20121128
  Transmission Date: 20130627
  Serious: Yes (Hospitalization)
  Sender: FDA-Public Use
  Company Number: US-BAYER-2011-018099

PATIENT
  Age: 20 Year
  Sex: Female
  Weight: 61.22 kg

DRUGS (4)
  1. YAZ [Suspect]
     Indication: ACNE
     Dosage: UNK
     Dates: start: 200801, end: 200901
  2. YAZ [Suspect]
     Indication: BIRTH CONTROL
  3. COUMADIN [Concomitant]
     Indication: PULMONARY EMBOLISM
  4. LOVENOX [Concomitant]
     Indication: PULMONARY EMBOLISM

REACTIONS (7)
  - Pulmonary embolism [None]
  - Injury [None]
  - Abdominal pain [None]
  - Back pain [None]
  - Anxiety [None]
  - Depression [None]
  - Disturbance in attention [None]
